FAERS Safety Report 22815727 (Version 3)
Quarter: 2024Q4

REPORT INFORMATION
  Report Type: Report from Study
  Country: US (occurrence: US)
  Receive Date: 20230811
  Receipt Date: 20241029
  Transmission Date: 20250114
  Serious: Yes (Hospitalization, Other)
  Sender: NOVARTIS
  Company Number: US-002147023-NVSC2023US175224

PATIENT
  Age: 70 Year
  Sex: Male

DRUGS (1)
  1. ENTRESTO [Suspect]
     Active Substance: SACUBITRIL\VALSARTAN
     Indication: Surgery
     Dosage: 1 DOSAGE FORM (97/103 MG)
     Route: 048
     Dates: start: 2017

REACTIONS (5)
  - Neck injury [Unknown]
  - Clavicle fracture [Unknown]
  - Wrist fracture [Unknown]
  - Multiple fractures [Unknown]
  - Hypoacusis [Unknown]

NARRATIVE: CASE EVENT DATE: 20201001
